FAERS Safety Report 7911541-4 (Version None)
Quarter: 2011Q4

REPORT INFORMATION
  Report Type: 
  Country: None (occurrence: None)
  Receive Date: 20111114
  Receipt Date: 20111101
  Transmission Date: 20120403
  Serious: Yes (Hospitalization, Other)
  Sender: FDA-Public Use
  Company Number: SE-ELI_LILLY_AND_COMPANY-SE201111001551

PATIENT
  Age: 70 Year
  Sex: Female

DRUGS (10)
  1. LAKTULOS [Concomitant]
  2. PREDNISOLONE [Concomitant]
     Indication: POLYMYALGIA RHEUMATICA
     Dosage: 60 MG, QD
     Route: 048
     Dates: start: 20110226, end: 20110618
  3. ALVEDON [Concomitant]
  4. ALENAT [Concomitant]
  5. OMEPRAZOL ACTAVIS [Concomitant]
  6. TRAMADOL HCL [Concomitant]
  7. IMOVANE [Concomitant]
  8. ZYPREXA [Suspect]
     Indication: PSYCHOTIC DISORDER
     Dosage: 10 MG, QD
     Route: 048
     Dates: start: 20110503, end: 20110617
  9. OXASCAND [Concomitant]
  10. BEHEPAN [Concomitant]

REACTIONS (4)
  - PSYCHOTIC DISORDER [None]
  - INCORRECT ROUTE OF DRUG ADMINISTRATION [None]
  - CONFUSIONAL STATE [None]
  - FATIGUE [None]
